FAERS Safety Report 4879008-8 (Version None)
Quarter: 2006Q1

REPORT INFORMATION
  Report Type: 
  Country: None (occurrence: None)
  Receive Date: 20060112
  Receipt Date: 20011025
  Transmission Date: 20060701
  Serious: Yes (Other)
  Sender: FDA-Public Use
  Company Number: DK-NOVOPROD-211783

PATIENT
  Age: 39 Year
  Sex: Female

DRUGS (1)
  1. NOVOSEVEN [Suspect]
     Indication: FACTOR VII DEFICIENCY

REACTIONS (2)
  - ANTI FACTOR VII ANTIBODY POSITIVE [None]
  - ANTIBODY TEST POSITIVE [None]
